FAERS Safety Report 7420651-X (Version None)
Quarter: 2011Q2

REPORT INFORMATION
  Report Type: 
  Country: None (occurrence: None)
  Receive Date: 20110408
  Receipt Date: 20110323
  Transmission Date: 20111010
  Serious: Yes (Hospitalization)
  Sender: FDA-Public Use
  Company Number: 2011FR0051

PATIENT
  Age: 22 Year
  Sex: Female

DRUGS (3)
  1. IBUPROFEN [Concomitant]
  2. BIRODOGYL [Concomitant]
  3. KINERET [Suspect]
     Indication: JUVENILE ARTHRITIS
     Dosage: 100 MG (100 MG, 1 IN 1 D) SUBCUTANEOUS
     Route: 058
     Dates: start: 20101130, end: 20110128

REACTIONS (4)
  - PHOTOPHOBIA [None]
  - HEPATITIS CHOLESTATIC [None]
  - HEADACHE [None]
  - CYTOLYTIC HEPATITIS [None]
